FAERS Safety Report 25241575 (Version 1)
Quarter: 2025Q2

REPORT INFORMATION
  Report Type: Other
  Country: AU (occurrence: AU)
  Receive Date: 20250426
  Receipt Date: 20250426
  Transmission Date: 20250716
  Serious: Yes (Death)
  Sender: SPECTRA MEDICAL DEVICES, LLC
  Company Number: AU-Spectra Medical Devices, LLC-2175639

PATIENT
  Age: 51 Year
  Sex: Female

DRUGS (2)
  1. LIDOCAINE HYDROCHLORIDE [Suspect]
     Active Substance: LIDOCAINE HYDROCHLORIDE
     Indication: Local anaesthesia
  2. LIDOCAINE HYDROCHLORIDE AND EPINEPHRINE [Concomitant]
     Active Substance: EPINEPHRINE\LIDOCAINE HYDROCHLORIDE

REACTIONS (1)
  - Methaemoglobinaemia [Fatal]
